FAERS Safety Report 14056212 (Version 2)
Quarter: 2017Q4

REPORT INFORMATION
  Report Type: Report from Study
  Country: BR (occurrence: BR)
  Receive Date: 20171006
  Receipt Date: 20171017
  Transmission Date: 20180321
  Serious: Yes (Other)
  Sender: FDA-Public Use
  Company Number: PHHY2017BR145571

PATIENT
  Sex: Female
  Weight: 46 kg

DRUGS (1)
  1. TEGRETOL [Suspect]
     Active Substance: CARBAMAZEPINE
     Indication: TRIGEMINAL NERVE DISORDER
     Dosage: 400 MG, BID
     Route: 048

REACTIONS (8)
  - Malaise [Unknown]
  - Rib fracture [Unknown]
  - Myocardial infarction [Unknown]
  - Gait inability [Unknown]
  - Fall [Unknown]
  - Labyrinthitis [Unknown]
  - Facial pain [Unknown]
  - Dyspnoea [Unknown]
